FAERS Safety Report 18946112 (Version 1)
Quarter: 2021Q1

REPORT INFORMATION
  Report Type: Spontaneous
  Country: US (occurrence: US)
  Receive Date: 20210226
  Receipt Date: 20210226
  Transmission Date: 20210420
  Serious: Yes (Other)
  Sender: FDA-Public Use
  Company Number: US-ASTRAZENECA-2021A077460

PATIENT
  Sex: Female
  Weight: 59 kg

DRUGS (1)
  1. TAGRISSO [Suspect]
     Active Substance: OSIMERTINIB
     Indication: LUNG CARCINOMA CELL TYPE UNSPECIFIED STAGE IV
     Route: 048
     Dates: start: 20160501

REACTIONS (7)
  - Bone loss [Unknown]
  - Nodule [Unknown]
  - Nail disorder [Unknown]
  - EGFR gene mutation [Unknown]
  - Dry skin [Unknown]
  - Dehydration [Unknown]
  - COVID-19 [Unknown]
